FAERS Safety Report 5136476-4 (Version None)
Quarter: 2006Q4

REPORT INFORMATION
  Report Type: 
  Country: None (occurrence: None)
  Receive Date: 20061027
  Receipt Date: 20061017
  Transmission Date: 20070319
  Serious: Yes (Hospitalization, Other)
  Sender: FDA-Public Use
  Company Number: CA-ABBOTT-06P-028-0347938-00

PATIENT
  Age: 20 Year
  Sex: Male

DRUGS (5)
  1. RITONAVIR [Suspect]
     Indication: SYSTEMIC ANTIVIRAL TREATMENT
     Route: 065
  2. RITONAVIR [Suspect]
     Route: 065
  3. RITONAVIR [Suspect]
     Route: 065
  4. CARBAMAZEPINE [Interacting]
     Indication: PARTIAL SEIZURES
     Route: 065
  5. CARBAMAZEPINE [Interacting]
     Route: 065

REACTIONS (8)
  - ALANINE AMINOTRANSFERASE INCREASED [None]
  - DRUG INTERACTION [None]
  - DRUG INTERACTION INHIBITION [None]
  - DRUG TOXICITY [None]
  - LYMPHADENOPATHY [None]
  - NAUSEA [None]
  - VERTIGO [None]
  - VOMITING [None]
